FAERS Safety Report 13297286 (Version 1)
Quarter: 2017Q1

REPORT INFORMATION
  Report Type: Spontaneous
  Country: US (occurrence: US)
  Receive Date: 20170303
  Receipt Date: 20170303
  Transmission Date: 20170428
  Serious: No
  Sender: FDA-Public Use
  Company Number: None

PATIENT
  Sex: Male

DRUGS (1)
  1. STIVARGA [Suspect]
     Active Substance: REGORAFENIB
     Indication: RECTAL CANCER
     Dosage: STIVARGA 160MG DAILY X 21 DAYS, THEN 7 DAYS OFF PO
     Route: 048
     Dates: start: 20161022, end: 20170302

REACTIONS (1)
  - Therapy non-responder [None]
